FAERS Safety Report 6994312-5 (Version None)
Quarter: 2010Q3

REPORT INFORMATION
  Report Type: 
  Country: None (occurrence: None)
  Receive Date: 20100917
  Receipt Date: 20100913
  Transmission Date: 20110219
  Serious: Yes (Death)
  Sender: FDA-Public Use
  Company Number: US-GILEAD-2010-0031794

PATIENT
  Age: 72 Year
  Sex: Female
  Weight: 74.002 kg

DRUGS (11)
  1. LETAIRIS [Suspect]
     Indication: PULMONARY ARTERIAL HYPERTENSION
     Route: 048
     Dates: start: 20100405
  2. LASIX [Concomitant]
  3. COUMADIN [Concomitant]
  4. ADVAIR DISKUS 100/50 [Concomitant]
  5. SPIRIVA [Concomitant]
  6. XOPENEX [Concomitant]
  7. CARDIZEM [Concomitant]
  8. ZITHROMAX [Concomitant]
  9. CENTRUM CALCIUM [Concomitant]
  10. PREDNISONE [Concomitant]
  11. POTASSIUM CHLORIDE [Concomitant]

REACTIONS (1)
  - DEATH [None]
